FAERS Safety Report 4696700-9 (Version None)
Quarter: 2005Q2

REPORT INFORMATION
  Report Type: 
  Country: None (occurrence: None)
  Receive Date: 20050622
  Receipt Date: 20040629
  Transmission Date: 20051028
  Serious: Yes (Hospitalization)
  Sender: FDA-Public Use
  Company Number: JP-BOEHRINGER INGELHEIM PHARMACEUTICALS, INC.-2004-BP-05145NB

PATIENT
  Sex: Male

DRUGS (5)
  1. PERSANTIN-L CAPSULES [Suspect]
     Indication: THROMBOSIS PROPHYLAXIS
     Route: 048
     Dates: start: 20040423, end: 20040615
  2. GASTER D [Suspect]
     Indication: GASTRITIS
     Route: 048
     Dates: start: 20040416, end: 20040615
  3. BLOPRESS [Suspect]
     Indication: HYPERTENSION
     Route: 048
     Dates: start: 20040416, end: 20040615
  4. RYTHMODAN [Suspect]
     Indication: ARRHYTHMIA
     Route: 048
     Dates: start: 20040423, end: 20040615
  5. WARFARIN [Concomitant]
     Indication: THROMBOSIS PROPHYLAXIS
     Route: 048
     Dates: start: 20040410, end: 20040615

REACTIONS (5)
  - ANOREXIA [None]
  - HAEMODIALYSIS [None]
  - HAEMORRHAGIC DIATHESIS [None]
  - HEPATITIS FULMINANT [None]
  - MALAISE [None]
